FAERS Safety Report 10264577 (Version 2)
Quarter: 2014Q2

REPORT INFORMATION
  Report Type: Spontaneous
  Country: US (occurrence: US)
  Receive Date: 20140627
  Receipt Date: 20140627
  Transmission Date: 20141212
  Serious: Yes (Other)
  Sender: FDA-Public Use
  Company Number: PHEH2014US007755

PATIENT
  Sex: Male

DRUGS (1)
  1. AFINITOR [Suspect]
     Dosage: 10 MG, UNK

REACTIONS (4)
  - Intervertebral disc protrusion [Unknown]
  - Spinal column stenosis [Unknown]
  - Metastases to spine [Unknown]
  - Therapeutic response decreased [Unknown]
